FAERS Safety Report 8894195 (Version 2)
Quarter: 2012Q4

REPORT INFORMATION
  Report Type: 
  Country: US (occurrence: US)
  Receive Date: 20121108
  Receipt Date: 20121203
  Transmission Date: 20130627
  Serious: Yes (Hospitalization)
  Sender: FDA-Public Use
  Company Number: US-MERCK-1211USA001247

PATIENT
  Age: 32 Year
  Sex: Female
  Weight: 75.9 kg

DRUGS (1)
  1. ASENAPINE MALEATE-BIPOLAR DISORDER [Suspect]
     Indication: BIPOLAR DISORDER
     Dosage: 5 mg, bid
     Route: 060
     Dates: start: 20121025, end: 20121030

REACTIONS (1)
  - Psychotic disorder [Recovering/Resolving]
